FAERS Safety Report 12960251 (Version 1)
Quarter: 2016Q4

REPORT INFORMATION
  Report Type: Spontaneous
  Country: US (occurrence: US)
  Receive Date: 20161121
  Receipt Date: 20161121
  Transmission Date: 20170207
  Serious: Yes (Life-Threatening)
  Sender: FDA-Public Use
  Company Number: None

PATIENT
  Age: 73 Year
  Sex: Male
  Weight: 94.8 kg

DRUGS (7)
  1. LOSARTAN. [Suspect]
     Active Substance: LOSARTAN
     Indication: BLOOD PRESSURE MEASUREMENT
     Dosage: ?          QUANTITY:LIMW?AKINGOR^M 1/ ?U;?
     Route: 048
     Dates: start: 20160916, end: 20160926
  2. COUMADIN [Concomitant]
     Active Substance: WARFARIN SODIUM
  3. METHOCARBAMOL. [Concomitant]
     Active Substance: METHOCARBAMOL
  4. BENICAR [Concomitant]
     Active Substance: OLMESARTAN MEDOXOMIL
  5. AMLODIPINE BESYLATE. [Concomitant]
     Active Substance: AMLODIPINE BESYLATE
  6. CLONIDINE. [Concomitant]
     Active Substance: CLONIDINE
  7. CLONAZEPAM. [Concomitant]
     Active Substance: CLONAZEPAM

REACTIONS (7)
  - Nervousness [None]
  - Hunger [None]
  - Tremor [None]
  - Dizziness [None]
  - Hypoglycaemia [None]
  - Asthenia [None]
  - Hyperhidrosis [None]

NARRATIVE: CASE EVENT DATE: 20160926
